FAERS Safety Report 4980758-3 (Version None)
Quarter: 2006Q2

REPORT INFORMATION
  Report Type: 
  Country: None (occurrence: None)
  Receive Date: 20060424
  Receipt Date: 20050706
  Transmission Date: 20061013
  Serious: Yes (Hospitalization, Disabling)
  Sender: FDA-Public Use
  Company Number: US-MERCK-0507USA00851

PATIENT
  Age: 60 Year
  Sex: Male
  Weight: 100 kg

DRUGS (16)
  1. VIOXX [Suspect]
     Indication: ARTHRITIS
     Route: 048
     Dates: start: 20020101, end: 20030201
  2. VIOXX [Suspect]
     Route: 048
     Dates: start: 20030201, end: 20041001
  3. TRIMOX [Concomitant]
     Route: 065
  4. ALLEGRA [Concomitant]
     Route: 065
  5. COUMADIN [Concomitant]
     Route: 065
  6. DIOVAN [Concomitant]
     Route: 065
  7. RANITIDINE [Concomitant]
     Route: 065
  8. ACIPHEX [Concomitant]
     Route: 065
  9. ATENOLOL [Concomitant]
     Route: 065
  10. HYDROCODONE HYDROCHLORIDE [Concomitant]
     Route: 065
  11. CYCLOBENZAPRINE HYDROCHLORIDE [Concomitant]
     Route: 065
  12. TRIAZOLAM [Concomitant]
     Route: 065
  13. METOPROLOL TARTRATE [Concomitant]
     Route: 065
  14. CLONIDINE [Concomitant]
     Route: 065
  15. EVOXAC [Concomitant]
     Route: 065
  16. LIPITOR [Concomitant]
     Route: 065

REACTIONS (10)
  - ARTHROPATHY [None]
  - CARPAL TUNNEL SYNDROME [None]
  - CEREBROVASCULAR ACCIDENT [None]
  - DEAFNESS [None]
  - GASTROOESOPHAGEAL REFLUX DISEASE [None]
  - HYPERTENSION [None]
  - JOINT INJURY [None]
  - SPEECH DISORDER [None]
  - TONGUE PARALYSIS [None]
  - TRANSIENT ISCHAEMIC ATTACK [None]
